FAERS Safety Report 11323883 (Version 1)
Quarter: 2015Q3

REPORT INFORMATION
  Report Type: Spontaneous
  Country: US (occurrence: US)
  Receive Date: 20150730
  Receipt Date: 20150730
  Transmission Date: 20151125
  Serious: No
  Sender: FDA-Public Use
  Company Number: US-MYLANLABS-2015M1008972

PATIENT
  Sex: Female
  Weight: 69.84 kg

DRUGS (7)
  1. AZITHROMYCIN [Suspect]
     Active Substance: AZITHROMYCIN ANHYDROUS
     Dosage: UNK
     Dates: start: 2010, end: 2010
  2. SIMVASTATIN. [Suspect]
     Active Substance: SIMVASTATIN
     Indication: BLOOD CHOLESTEROL INCREASED
     Dosage: 40 MG, QD
     Dates: start: 2010, end: 201210
  3. MULTIVITAMIN                       /00097801/ [Concomitant]
     Active Substance: VITAMINS
     Dosage: UNK
  4. SIMVASTATIN. [Suspect]
     Active Substance: SIMVASTATIN
     Indication: HYPERLIPIDAEMIA
     Dosage: 40 MG, QD
     Dates: start: 201303
  5. FIBERTAB [Concomitant]
     Active Substance: CALCIUM POLYCARBOPHIL
     Dosage: UNK
  6. GINKO BILOBA [Concomitant]
     Active Substance: GINKGO
     Dosage: UNK
  7. PROBIOTICS                         /07325001/ [Concomitant]
     Dosage: UNK

REACTIONS (4)
  - Rash [Recovered/Resolved]
  - Irritable bowel syndrome [Not Recovered/Not Resolved]
  - Skin exfoliation [Recovered/Resolved]
  - Drug interaction [Recovered/Resolved]

NARRATIVE: CASE EVENT DATE: 2010
